FAERS Safety Report 13046483 (Version 2)
Quarter: 2017Q1

REPORT INFORMATION
  Report Type: Spontaneous
  Country: US (occurrence: US)
  Receive Date: 20161220
  Receipt Date: 20170119
  Transmission Date: 20170428
  Serious: No
  Sender: FDA-Public Use
  Company Number: US-PFIZER INC-2016582188

PATIENT
  Age: 62 Year
  Sex: Male
  Weight: 159 kg

DRUGS (1)
  1. SILDENAFIL CITRATE. [Suspect]
     Active Substance: SILDENAFIL CITRATE
     Indication: ERECTILE DYSFUNCTION
     Dosage: 50 MG (100 MG, ONE HALF TABLET)
     Route: 048
     Dates: start: 2000

REACTIONS (3)
  - Drug effect incomplete [Unknown]
  - Product quality issue [Unknown]
  - Flushing [Unknown]
